FAERS Safety Report 9532768 (Version 2)
Quarter: 2013Q3

REPORT INFORMATION
  Report Type: Spontaneous
  Country: US (occurrence: US)
  Receive Date: 20130918
  Receipt Date: 20130918
  Transmission Date: 20140515
  Serious: Yes (Other)
  Sender: FDA-Public Use
  Company Number: US-NAPPMUNDI-USA-2011-0075320

PATIENT
  Age: 69 Year
  Sex: Male

DRUGS (1)
  1. BUTRANS [Suspect]
     Indication: PRODUCT USED FOR UNKNOWN INDICATION
     Dosage: 10 MCG, Q1H
     Route: 062

REACTIONS (5)
  - Pharyngeal oedema [Recovering/Resolving]
  - Oedema mouth [Recovering/Resolving]
  - Dyspnoea [Recovering/Resolving]
  - Pruritus [Recovering/Resolving]
  - Unevaluable event [Recovering/Resolving]
